FAERS Safety Report 4798335-6 (Version None)
Quarter: 2005Q4

REPORT INFORMATION
  Report Type: 
  Country: None (occurrence: None)
  Receive Date: 20051014
  Receipt Date: 20051003
  Transmission Date: 20060501
  Serious: Yes (Hospitalization)
  Sender: FDA-Public Use
  Company Number: GB-BRISTOL-MYERS SQUIBB COMPANY-13137583

PATIENT
  Age: 68 Year
  Sex: Female

DRUGS (5)
  1. METFORMIN HCL [Suspect]
  2. THEOPHYLLINE [Suspect]
  3. PREDNISOLONE [Suspect]
     Indication: ASTHMA
  4. MONTELUKAST [Suspect]
     Indication: ASTHMA
  5. FLIXOTIDE [Suspect]

REACTIONS (1)
  - PERITONITIS BACTERIAL [None]
